FAERS Safety Report 19386225 (Version 1)
Quarter: 2021Q2

REPORT INFORMATION
  Report Type: Spontaneous
  Country: CA (occurrence: CA)
  Receive Date: 20210605
  Receipt Date: 20210605
  Transmission Date: 20210717
  Serious: Yes (Life-Threatening, Hospitalization, Disabling)
  Sender: FDA-Public Use
  Company Number: None

PATIENT
  Age: 55 Year
  Sex: Female
  Weight: 72 kg

DRUGS (3)
  1. DIAZEPAM 2MG [Suspect]
     Active Substance: DIAZEPAM
     Indication: PANIC ATTACK
     Dates: start: 20191219
  2. NIL [Concomitant]
  3. MIRTAZAPINE. [Concomitant]
     Active Substance: MIRTAZAPINE

REACTIONS (6)
  - Akathisia [None]
  - Condition aggravated [None]
  - Disability [None]
  - Suicidal ideation [None]
  - Panic reaction [None]
  - Impaired quality of life [None]

NARRATIVE: CASE EVENT DATE: 20191229
